FAERS Safety Report 8401353-X (Version None)
Quarter: 2012Q2

REPORT INFORMATION
  Report Type: 
  Country: None (occurrence: None)
  Receive Date: 20120601
  Receipt Date: 20120522
  Transmission Date: 20120825
  Serious: Yes (Hospitalization)
  Sender: FDA-Public Use
  Company Number: JP-VERTEX PHARMACEUTICALS INC.-AE-2012-007789

PATIENT
  Age: 56 Year
  Sex: Female

DRUGS (4)
  1. PEG-INTRON [Concomitant]
     Route: 051
     Dates: start: 20120308
  2. TELAVIC (TELAPREVIR) [Suspect]
     Route: 048
     Dates: start: 20120308, end: 20120517
  3. REBETOL [Concomitant]
     Route: 048
     Dates: start: 20120308
  4. CLARITIN REDITABS [Concomitant]
     Route: 048
     Dates: start: 20120308

REACTIONS (1)
  - RASH PAPULAR [None]
